FAERS Safety Report 17268642 (Version 1)
Quarter: 2020Q1

REPORT INFORMATION
  Report Type: Spontaneous
  Country: US (occurrence: US)
  Receive Date: 20200114
  Receipt Date: 20200114
  Transmission Date: 20200409
  Serious: Yes (Death, Hospitalization)
  Sender: FDA-Public Use
  Company Number: US-BAYER-2020-003270

PATIENT
  Age: 36 Year
  Sex: Female

DRUGS (2)
  1. PARACETAMOL + CHLORPHENIRAMINE MALEATE + DEXTROMETHORPHAN [Suspect]
     Active Substance: ACETAMINOPHEN\CHLORPHENIRAMINE\DEXTROMETHORPHAN
  2. LOPERAMIDE [Suspect]
     Active Substance: LOPERAMIDE

REACTIONS (2)
  - Intentional product misuse [Fatal]
  - Toxicity to various agents [Fatal]
